FAERS Safety Report 6822448-8 (Version None)
Quarter: 2010Q3

REPORT INFORMATION
  Report Type: 
  Country: None (occurrence: None)
  Receive Date: 20100707
  Receipt Date: 20100707
  Transmission Date: 20110219
  Serious: Yes (Hospitalization)
  Sender: FDA-Public Use
  Company Number: None

PATIENT
  Sex: Female
  Weight: 77.1115 kg

DRUGS (1)
  1. AVANDIA [Suspect]
     Indication: DIABETES MELLITUS
     Dosage: 4MGM DAILY PO
     Route: 048
     Dates: start: 20050204, end: 20081104

REACTIONS (3)
  - FALL [None]
  - LACERATION [None]
  - NECK PAIN [None]
